FAERS Safety Report 4611029-2 (Version None)
Quarter: 2005Q1

REPORT INFORMATION
  Report Type: 
  Country: None (occurrence: None)
  Receive Date: 20050316
  Receipt Date: 20050316
  Transmission Date: 20050727
  Serious: Yes (Hospitalization)
  Sender: FDA-Public Use
  Company Number: None

PATIENT
  Age: 81 Year
  Sex: Male
  Weight: 86.637 kg

DRUGS (7)
  1. COUMADIN [Suspect]
     Indication: ATRIAL FIBRILLATION
     Dosage: 2MG DAILY, 4MG THURS.
  2. LISINOPRIL [Concomitant]
  3. LOVASTATIN [Concomitant]
  4. METOPROLOL TARTRATE [Concomitant]
  5. OMEPRAZOLE [Concomitant]
  6. SILDENAFIL [Concomitant]
  7. TERAZOSIN [Concomitant]

REACTIONS (5)
  - DIVERTICULUM [None]
  - DIZZINESS POSTURAL [None]
  - HAEMATOCHEZIA [None]
  - HAEMORRHAGE [None]
  - INTERNATIONAL NORMALISED RATIO INCREASED [None]
